FAERS Safety Report 20546682 (Version 1)
Quarter: 2022Q1

REPORT INFORMATION
  Report Type: Spontaneous
  Country: US (occurrence: None)
  Receive Date: 20220303
  Receipt Date: 20220303
  Transmission Date: 20220424
  Serious: No
  Sender: FDA-Public Use
  Company Number: None

PATIENT
  Sex: Female

DRUGS (1)
  1. TALTZ [Suspect]
     Active Substance: IXEKIZUMAB
     Indication: Juvenile psoriatic arthritis
     Dosage: FREQUENCY : MONTHLY;?
     Route: 058
     Dates: start: 20170415

REACTIONS (2)
  - Pain [None]
  - Condition aggravated [None]
